FAERS Safety Report 11576434 (Version 1)
Quarter: 2015Q3

REPORT INFORMATION
  Report Type: Spontaneous
  Country: MX (occurrence: MX)
  Receive Date: 20150930
  Receipt Date: 20150930
  Transmission Date: 20151125
  Serious: Yes (Hospitalization, Disabling, Other)
  Sender: FDA-Public Use
  Company Number: MX-SA-2015SA147192

PATIENT
  Age: 62 Year
  Sex: Female
  Weight: 86 kg

DRUGS (2)
  1. LANTUS SOLOSTAR [Suspect]
     Active Substance: INSULIN GLARGINE
     Indication: TYPE 2 DIABETES MELLITUS
     Dosage: DOSE: 20 IU IN MORNING AND 15 AT NIGHT
     Route: 058
     Dates: start: 2015
  2. SOLOSTAR [Concomitant]
     Active Substance: DEVICE
     Dates: start: 2015

REACTIONS (6)
  - Speech disorder [Recovered/Resolved]
  - Cerebrovascular accident [Recovered/Resolved]
  - Off label use [Unknown]
  - Hyperglycaemia [Not Recovered/Not Resolved]
  - Hemiplegia [Recovered/Resolved]
  - Toe amputation [Unknown]

NARRATIVE: CASE EVENT DATE: 2015
